FAERS Safety Report 18783068 (Version 1)
Quarter: 2021Q1

REPORT INFORMATION
  Report Type: Spontaneous
  Country: US (occurrence: US)
  Receive Date: 20210125
  Receipt Date: 20210125
  Transmission Date: 20210419
  Serious: No
  Sender: FDA-Public Use
  Company Number: US-JNJFOC-20190838994

PATIENT
  Age: 56 Year
  Sex: Female
  Weight: 63.11 kg

DRUGS (1)
  1. IMODIUM MULTI?SYMPTOM RELIEF [Suspect]
     Active Substance: DIMETHICONE\LOPERAMIDE HYDROCHLORIDE
     Indication: DIARRHOEA
     Dosage: 1/2 CAPLET ONE TIME
     Route: 048
     Dates: end: 20190729

REACTIONS (2)
  - Wrong technique in product usage process [Unknown]
  - Product packaging issue [Unknown]
